FAERS Safety Report 12614046 (Version 5)
Quarter: 2017Q1

REPORT INFORMATION
  Report Type: Spontaneous
  Country: US (occurrence: US)
  Receive Date: 20160802
  Receipt Date: 20170206
  Transmission Date: 20170428
  Serious: No
  Sender: FDA-Public Use
  Company Number: US-PFIZER INC-2016368703

PATIENT
  Age: 38 Year
  Sex: Female
  Weight: 63.5 kg

DRUGS (3)
  1. STRATTERA [Concomitant]
     Active Substance: ATOMOXETINE HYDROCHLORIDE
     Indication: ATTENTION DEFICIT/HYPERACTIVITY DISORDER
     Dosage: 100 MG, 1X/DAY
     Route: 048
     Dates: start: 2008
  2. EFFEXOR XR [Suspect]
     Active Substance: VENLAFAXINE HYDROCHLORIDE
     Indication: ANXIETY
     Dosage: 112.5 MG, 1X/DAY
     Route: 048
     Dates: start: 200805
  3. EFFEXOR XR [Suspect]
     Active Substance: VENLAFAXINE HYDROCHLORIDE
     Indication: DEPRESSION

REACTIONS (9)
  - Drug ineffective [Not Recovered/Not Resolved]
  - Nervousness [Not Recovered/Not Resolved]
  - Photosensitivity reaction [Not Recovered/Not Resolved]
  - Dizziness [Not Recovered/Not Resolved]
  - Nausea [Not Recovered/Not Resolved]
  - Feeling hot [Not Recovered/Not Resolved]
  - Myalgia [Not Recovered/Not Resolved]
  - Irritability [Not Recovered/Not Resolved]
  - Paraesthesia [Not Recovered/Not Resolved]

NARRATIVE: CASE EVENT DATE: 20160726
